FAERS Safety Report 4772283-X (Version None)
Quarter: 2005Q3

REPORT INFORMATION
  Report Type: 
  Country: None (occurrence: None)
  Receive Date: 20050919
  Receipt Date: 20050603
  Transmission Date: 20060218
  Serious: No
  Sender: FDA-Public Use
  Company Number: US-BRISTOL-MYERS SQUIBB COMPANY-12994018

PATIENT
  Sex: Female

DRUGS (1)
  1. DEFINITY [Suspect]
     Dosage: DOSE VALUE:  2-3 CC
     Route: 040
     Dates: start: 20050524, end: 20050524

REACTIONS (1)
  - BACK PAIN [None]
